FAERS Safety Report 11177913 (Version 2)
Quarter: 2015Q3

REPORT INFORMATION
  Report Type: Report from Study
  Country: US (occurrence: US)
  Receive Date: 20150610
  Receipt Date: 20150902
  Transmission Date: 20151125
  Serious: Yes (Other)
  Sender: FDA-Public Use
  Company Number: US-PFIZER INC-2015191209

PATIENT
  Age: 73 Year
  Sex: Female

DRUGS (2)
  1. REVATIO [Suspect]
     Active Substance: SILDENAFIL CITRATE
     Dosage: UNK
  2. AMBRISENTAN [Suspect]
     Active Substance: AMBRISENTAN
     Indication: PULMONARY ARTERIAL HYPERTENSION
     Dosage: 10 MG, 1X/DAY
     Dates: start: 20140820

REACTIONS (9)
  - Dyspepsia [Unknown]
  - Epistaxis [Unknown]
  - Sinus congestion [Unknown]
  - Hypoacusis [Unknown]
  - Dizziness [Unknown]
  - Bronchitis [Unknown]
  - Pneumonia [Unknown]
  - Eructation [Unknown]
  - Nasal congestion [Unknown]

NARRATIVE: CASE EVENT DATE: 201501
